FAERS Safety Report 8041894-0 (Version None)
Quarter: 2012Q1

REPORT INFORMATION
  Report Type: 
  Country: None (occurrence: None)
  Receive Date: 20120112
  Receipt Date: 20120112
  Transmission Date: 20120608
  Serious: Yes (Hospitalization)
  Sender: FDA-Public Use
  Company Number: None

PATIENT
  Age: 53 Year
  Sex: Female
  Weight: 122.46 kg

DRUGS (2)
  1. GAS-X CHEWABLES [Suspect]
     Indication: FLATULENCE
     Dosage: 2 TABLETS
     Route: 048
     Dates: start: 20111230, end: 20120109
  2. GAS-X CHEWABLES [Suspect]
     Indication: ABDOMINAL DISTENSION
     Dosage: 2 TABLETS
     Route: 048
     Dates: start: 20111230, end: 20120109

REACTIONS (5)
  - PRODUCT QUALITY ISSUE [None]
  - DISCOMFORT [None]
  - FEAR [None]
  - ABDOMINAL PAIN [None]
  - CHEST PAIN [None]
